FAERS Safety Report 25496270 (Version 1)
Quarter: 2025Q2

REPORT INFORMATION
  Report Type: Spontaneous
  Country: RU (occurrence: RU)
  Receive Date: 20250630
  Receipt Date: 20250630
  Transmission Date: 20250716
  Serious: Yes (Other)
  Sender: NOVARTIS
  Company Number: RU-002147023-NVSC2025RU094981

PATIENT
  Age: 27 Year

DRUGS (3)
  1. BRINZOLAMIDE\TIMOLOL [Suspect]
     Active Substance: BRINZOLAMIDE\TIMOLOL
     Indication: Intraocular pressure increased
     Route: 065
  2. TRAVOPROST [Suspect]
     Active Substance: TRAVOPROST
     Indication: Intraocular pressure increased
     Route: 065
  3. BRIMONIDINE [Concomitant]
     Active Substance: BRIMONIDINE TARTRATE
     Indication: Intraocular pressure increased
     Route: 065

REACTIONS (1)
  - Intraocular pressure increased [Recovered/Resolved]
